FAERS Safety Report 8654551 (Version 2)
Quarter: 2012Q4

REPORT INFORMATION
  Report Type: 
  Country: JP (occurrence: JP)
  Receive Date: 20120709
  Receipt Date: 20121003
  Transmission Date: 20130627
  Serious: Yes (Death, Life-Threatening, Hospitalization)
  Sender: FDA-Public Use
  Company Number: JP-TEVA-2011001969

PATIENT
  Age: 74 Year
  Sex: Male
  Weight: 66.8 kg

DRUGS (16)
  1. BENDAMUSTINE HCL [Suspect]
     Indication: MANTLE CELL LYMPHOMA RECURRENT
     Route: 042
     Dates: start: 20110331, end: 20110401
  2. BENDAMUSTINE HCL [Suspect]
     Route: 042
     Dates: start: 20110425, end: 20110426
  3. BENDAMUSTINE HCL [Suspect]
     Route: 042
     Dates: start: 20110523, end: 20110524
  4. BENDAMUSTINE HCL [Suspect]
     Route: 042
     Dates: start: 20110615, end: 20110616
  5. BENDAMUSTINE HCL [Suspect]
     Route: 042
     Dates: start: 20110706, end: 20110707
  6. BENDAMUSTINE HCL [Suspect]
     Route: 042
     Dates: start: 20110811, end: 20110812
  7. RITUXIMAB [Concomitant]
     Dosage: 375 Milligram Daily;
     Dates: start: 20110420
  8. RITUXIMAB [Concomitant]
     Dosage: 375 Milligram Daily;
     Dates: start: 20110523
  9. RITUXIMAB [Concomitant]
     Dosage: 375 Milligram Daily;
     Dates: start: 20110613
  10. RITUXIMAB [Concomitant]
     Dosage: 375 Milligram Daily;
     Dates: start: 20110704
  11. RITUXIMAB [Concomitant]
     Dosage: 375 Milligram Daily;
     Dates: start: 20110808
  12. GABEXATE MESILATE [Concomitant]
     Dates: start: 20110917, end: 20110920
  13. SODIUM RABEPRAZOLE [Concomitant]
     Dates: start: 20110909, end: 20110911
  14. LANSOPRAZOLE [Concomitant]
     Dates: start: 20110912, end: 20110913
  15. METHYLPREDNISOLONE SODIUM SUCCINATE [Concomitant]
     Dates: start: 20110909, end: 20110911
  16. PREDNISOLONE [Concomitant]
     Dates: start: 20110912, end: 20110919

REACTIONS (4)
  - Pneumocystis jiroveci pneumonia [Fatal]
  - Cytomegalovirus infection [Fatal]
  - Pyrexia [Recovering/Resolving]
  - Pneumonia mycoplasmal [Fatal]
